FAERS Safety Report 11006107 (Version 3)
Quarter: 2015Q2

REPORT INFORMATION
  Report Type: Spontaneous
  Country: US (occurrence: US)
  Receive Date: 20150409
  Receipt Date: 20150519
  Transmission Date: 20150821
  Serious: No
  Sender: FDA-Public Use
  Company Number: US-MALLINCKRODT-T201501880

PATIENT
  Sex: Male

DRUGS (3)
  1. GABLOFEN [Suspect]
     Active Substance: BACLOFEN
     Indication: MUSCLE SPASTICITY
     Dosage: 185 MCG/DAY
     Route: 037
  2. GABLOFEN [Suspect]
     Active Substance: BACLOFEN
     Dosage: 698.8 MCG/DAY
     Route: 037
  3. BACLOFEN. [Concomitant]
     Active Substance: BACLOFEN
     Dosage: 20 MG, BID

REACTIONS (4)
  - Muscle spasticity [Recovered/Resolved]
  - Drug dose omission [Recovered/Resolved]
  - Device alarm issue [Recovered/Resolved]
  - Fatigue [Recovered/Resolved]
